FAERS Safety Report 8686800 (Version 5)
Quarter: 2012Q4

REPORT INFORMATION
  Report Type: 
  Country: BE (occurrence: BE)
  Receive Date: 20120727
  Receipt Date: 20121031
  Transmission Date: 20130627
  Serious: Yes (Other)
  Sender: FDA-Public Use
  Company Number: BE-AMGEN-BELSP2012045208

PATIENT
  Age: 40 Year
  Sex: Male
  Weight: 70 kg

DRUGS (3)
  1. ENBREL [Suspect]
     Indication: PSORIASIS
     Dosage: 50 mg, weekly
     Route: 058
     Dates: start: 20120615, end: 20120714
  2. ENBREL [Interacting]
     Dosage: UNK
     Dates: start: 20120808
  3. BRUFEN                             /00109201/ [Interacting]
     Indication: TOOTHACHE
     Dosage: 400 mg, 3x/day
     Dates: start: 20120714

REACTIONS (5)
  - Dizziness [Unknown]
  - Drug interaction [Unknown]
  - Headache [Recovered/Resolved]
  - Tooth infection [Recovered/Resolved]
  - Rash erythematous [Not Recovered/Not Resolved]
